FAERS Safety Report 9830094 (Version 1)
Quarter: 2014Q1

REPORT INFORMATION
  Report Type: Spontaneous
  Country: IT (occurrence: IT)
  Receive Date: 20140120
  Receipt Date: 20140120
  Transmission Date: 20141002
  Serious: Yes (Other)
  Sender: FDA-Public Use
  Company Number: IT-MYLANLABS-2014S1000523

PATIENT
  Age: 65 Year
  Sex: Female

DRUGS (6)
  1. GEMCITABINE [Suspect]
     Indication: PANCREATIC CARCINOMA
     Dosage: 1000 MG/M2 ON D1, 8, 15 EVERY 28D
     Route: 065
     Dates: start: 201003, end: 201009
  2. PACLITAXEL [Suspect]
     Indication: METASTASES TO PERITONEUM
     Dosage: 100 MG/M2 WEEKLY
     Route: 065
  3. INSULIN [Concomitant]
     Route: 065
  4. ALDACTONE [Concomitant]
     Dosage: 100MG
     Route: 065
  5. DILATREND [Concomitant]
     Route: 065
  6. CARDIOASPIRIN [Concomitant]
     Route: 065

REACTIONS (3)
  - Capillary leak syndrome [Recovering/Resolving]
  - Pulmonary hypertension [Recovering/Resolving]
  - Acute respiratory distress syndrome [Recovering/Resolving]
